FAERS Safety Report 6686068-0 (Version None)
Quarter: 2010Q2

REPORT INFORMATION
  Report Type: 
  Country: None (occurrence: None)
  Receive Date: 20100419
  Receipt Date: 20100408
  Transmission Date: 20101027
  Serious: Yes (Hospitalization, Other)
  Sender: FDA-Public Use
  Company Number: DK-JNJFOC-20090605220

PATIENT
  Sex: Female

DRUGS (4)
  1. STELARA [Suspect]
     Indication: PSORIASIS
     Route: 058
  2. STELARA [Suspect]
     Route: 058
  3. RAPTIVA [Interacting]
     Indication: PSORIASIS
     Route: 058
  4. DERMOVAT [Concomitant]
     Route: 003

REACTIONS (5)
  - APLASTIC ANAEMIA [None]
  - CHOLELITHIASIS [None]
  - DRUG INTERACTION [None]
  - HAEMOLYSIS [None]
  - STAPHYLOCOCCAL SEPSIS [None]
